FAERS Safety Report 23197736 (Version 1)
Quarter: 2023Q4

REPORT INFORMATION
  Report Type: Spontaneous
  Country: CZ (occurrence: CZ)
  Receive Date: 20231117
  Receipt Date: 20231117
  Transmission Date: 20240110
  Serious: Yes (Other)
  Sender: FDA-Public Use
  Company Number: None

PATIENT
  Age: 37 Year
  Sex: Female

DRUGS (1)
  1. AJOVY [Suspect]
     Active Substance: FREMANEZUMAB-VFRM
     Indication: Migraine
     Dosage: ONE DOSE PER MONTH
     Dates: start: 20230718, end: 20230918

REACTIONS (3)
  - Application site pruritus [Recovered/Resolved]
  - Dermatitis allergic [Recovered/Resolved]
  - Puncture site erythema [Recovered/Resolved]

NARRATIVE: CASE EVENT DATE: 20230818
